FAERS Safety Report 4951995-9 (Version None)
Quarter: 2006Q1

REPORT INFORMATION
  Report Type: 
  Country: None (occurrence: None)
  Receive Date: 20060322
  Receipt Date: 20060322
  Transmission Date: 20060701
  Serious: Yes (Life-Threatening, Hospitalization, Disabling)
  Sender: FDA-Public Use
  Company Number: None

PATIENT
  Sex: Male
  Weight: 55.3388 kg

DRUGS (1)
  1. CLARAVIS [Suspect]
     Indication: ACNE CYSTIC
     Dosage: SEE IMAGE
     Route: 048
     Dates: start: 20050112, end: 20051001

REACTIONS (6)
  - BIPOLAR I DISORDER [None]
  - DEPRESSION [None]
  - DISTURBANCE IN ATTENTION [None]
  - MENTAL DISORDER [None]
  - MOOD SWINGS [None]
  - SUICIDE ATTEMPT [None]
